FAERS Safety Report 16344932 (Version 1)
Quarter: 2019Q2

REPORT INFORMATION
  Report Type: Spontaneous
  Country: US (occurrence: US)
  Receive Date: 20190522
  Receipt Date: 20190522
  Transmission Date: 20190711
  Serious: Yes (Death)
  Sender: FDA-Public Use
  Company Number: US-JNJFOC-20190516740

PATIENT
  Age: 3 Year
  Sex: Male

DRUGS (6)
  1. CHILDRENS TYLENOL [Suspect]
     Active Substance: ACETAMINOPHEN
     Indication: PYREXIA
     Dosage: INITIATED ON OR ABOUT 07-MAY-2014
     Route: 065
     Dates: start: 201405
  2. CHILDRENS MOTRIN [Suspect]
     Active Substance: IBUPROFEN
     Indication: DECREASED APPETITE
     Dosage: INITIATED ON OR ABOUT 08-MAY-2014
     Route: 065
     Dates: start: 201405
  3. CHILDRENS MOTRIN [Suspect]
     Active Substance: IBUPROFEN
     Indication: VOMITING
     Dosage: INITIATED ON OR ABOUT 08-MAY-2014
     Route: 065
     Dates: start: 201405
  4. CHILDRENS TYLENOL [Suspect]
     Active Substance: ACETAMINOPHEN
     Indication: DECREASED APPETITE
     Dosage: INITIATED ON OR ABOUT 07-MAY-2014
     Route: 065
     Dates: start: 201405
  5. CHILDRENS MOTRIN [Suspect]
     Active Substance: IBUPROFEN
     Indication: PYREXIA
     Dosage: INITIATED ON OR ABOUT 08-MAY-2014
     Route: 065
     Dates: start: 201405
  6. CHILDRENS TYLENOL [Suspect]
     Active Substance: ACETAMINOPHEN
     Indication: VOMITING
     Dosage: INITIATED ON OR ABOUT 07-MAY-2014
     Route: 065
     Dates: start: 201405

REACTIONS (3)
  - Stevens-Johnson syndrome [Unknown]
  - Product use in unapproved indication [Unknown]
  - Death [Fatal]

NARRATIVE: CASE EVENT DATE: 201405
